FAERS Safety Report 4750401-7 (Version None)
Quarter: 2005Q3

REPORT INFORMATION
  Report Type: 
  Country: None (occurrence: None)
  Receive Date: 20050818
  Receipt Date: 20050810
  Transmission Date: 20060218
  Serious: Yes (Hospitalization)
  Sender: FDA-Public Use
  Company Number: 2005-02940

PATIENT
  Age: 58 Year
  Sex: Female

DRUGS (3)
  1. FLUOROURACIL [Suspect]
     Indication: GASTRIC CANCER
     Dosage: 75MG, Q24H FROM DAY 1 TO 8,. INTRAVENOUS
     Route: 042
     Dates: start: 20040401
  2. DOCETAXEL (DOCETAXEL) [Suspect]
     Indication: GASTRIC CANCER
     Dosage: 75 MG/M2, Q24H FROM DAY 1 TO 8, INTRAVENOUS
     Route: 042
     Dates: start: 20040401
  3. CISPLATIN [Suspect]
     Indication: GASTRIC CANCER
     Dosage: 75 MG/M2,Q24H FROM DAY 1 TO 8, INTRAVENOUS
     Route: 042
     Dates: start: 20040401

REACTIONS (2)
  - LARGE INTESTINE PERFORATION [None]
  - NEOPLASM PROGRESSION [None]
